FAERS Safety Report 17856301 (Version 2)
Quarter: 2020Q2

REPORT INFORMATION
  Report Type: Report from Study
  Country: CR (occurrence: CR)
  Receive Date: 20200603
  Receipt Date: 20200609
  Transmission Date: 20200714
  Serious: Yes (Other)
  Sender: FDA-Public Use
  Company Number: NVSC2020CR153449

PATIENT
  Age: 77 Year
  Sex: Female

DRUGS (1)
  1. CO-DIOVAN [Suspect]
     Active Substance: HYDROCHLOROTHIAZIDE\VALSARTAN
     Indication: NEPHRITIS
     Dosage: 160/25 MG
     Route: 065

REACTIONS (4)
  - Product use in unapproved indication [Unknown]
  - Breast cancer [Unknown]
  - Arrhythmia [Recovered/Resolved]
  - Urinary tract infection [Unknown]
